FAERS Safety Report 8804906 (Version 2)
Quarter: 2012Q4

REPORT INFORMATION
  Report Type: 
  Country: US (occurrence: US)
  Receive Date: 20120924
  Receipt Date: 20121012
  Transmission Date: 20130627
  Serious: Yes (Other)
  Sender: FDA-Public Use
  Company Number: US-PFIZER INC-2012234059

PATIENT
  Age: 72 Year
  Sex: Female
  Weight: 60.7 kg

DRUGS (19)
  1. TIKOSYN [Suspect]
     Indication: HEART RATE
     Dosage: 125 ug, 2x/day
     Route: 048
  2. CELLCEPT [Concomitant]
     Dosage: 500 mg, 2x/day
  3. ADVIL [Concomitant]
     Dosage: UNK
  4. BABY ASPIRIN [Concomitant]
     Dosage: UNK, 1x/day
  5. DIGOXIN [Concomitant]
     Dosage: UNK
  6. FEXOFENADINE [Concomitant]
     Indication: HYPERSENSITIVITY
     Dosage: UNK
  7. LASIX [Concomitant]
     Dosage: UNK
  8. ATENOLOL [Concomitant]
     Indication: HYPERTENSION
     Dosage: UNK
  9. NEURONTIN [Concomitant]
     Dosage: UNK
  10. PREVACID [Concomitant]
     Indication: DYSPEPSIA
     Dosage: UNK
  11. HYDROCODONE [Concomitant]
     Indication: BACK PAIN
     Dosage: UNK
  12. ISOSORBIDE [Concomitant]
     Dosage: 30 mg, UNK
  13. VITAMIN D [Concomitant]
     Dosage: 200 mg, UNK
  14. N-ACETYLCYSTEINE [Concomitant]
     Dosage: 600 mg, UNK
  15. BIOTIN [Concomitant]
     Dosage: 500 ug, UNK
  16. CALCIUM [Concomitant]
     Dosage: 600 mg, 2x/day
  17. NITROQUICK [Concomitant]
     Dosage: 15 mg, as needed
  18. FLAXSEED OIL [Concomitant]
     Dosage: 1000 mg, UNK
  19. COUMADINE [Concomitant]
     Dosage: UNK, 2x/day

REACTIONS (11)
  - Pancreatitis [Unknown]
  - Hypoaesthesia [Unknown]
  - Paraesthesia oral [Unknown]
  - Pain in extremity [Unknown]
  - Abdominal pain upper [Unknown]
  - Pruritus [Unknown]
  - Nausea [Unknown]
  - Faeces pale [Unknown]
  - Dyspnoea [Unknown]
  - Dysphoria [Unknown]
  - Dysphonia [Unknown]
